FAERS Safety Report 7114047-8 (Version None)
Quarter: 2010Q4

REPORT INFORMATION
  Report Type: 
  Country: None (occurrence: None)
  Receive Date: 20101119
  Receipt Date: 20101111
  Transmission Date: 20110411
  Serious: Yes (Hospitalization)
  Sender: FDA-Public Use
  Company Number: CA-ABBOTT-10P-028-0618320-00

PATIENT
  Sex: Male
  Weight: 123.49 kg

DRUGS (6)
  1. HUMIRA [Suspect]
     Indication: PSORIASIS
     Route: 058
     Dates: start: 20090220
  2. MULTI-VITAMINS [Concomitant]
     Indication: MEDICAL DIET
     Dates: start: 20070501
  3. NAPROXEN [Concomitant]
     Indication: CELLULITIS
     Dates: start: 20080328, end: 20090101
  4. CLOBETASOL PROPIONATE [Concomitant]
     Indication: CELLULITIS
     Dosage: 1 APPLICATION
     Dates: start: 20080506
  5. ATARAX [Concomitant]
     Indication: ANTIALLERGIC THERAPY
     Dates: start: 20090701
  6. LAMISIL [Concomitant]
     Indication: CELLULITIS
     Dates: start: 20090401

REACTIONS (1)
  - MIGRAINE [None]
